FAERS Safety Report 25651580 (Version 1)
Quarter: 2025Q3

REPORT INFORMATION
  Report Type: Spontaneous
  Country: RU (occurrence: None)
  Receive Date: 20250806
  Receipt Date: 20250806
  Transmission Date: 20251020
  Serious: Yes (Other)
  Sender: Harrow Health
  Company Number: NVSC2025RU118914

PATIENT
  Age: 41 Year

DRUGS (4)
  1. MAXIDEX [Suspect]
     Active Substance: DEXAMETHASONE
     Indication: Postoperative care
     Route: 065
  2. MAXIDEX [Suspect]
     Active Substance: DEXAMETHASONE
     Route: 065
  3. MAXIDEX [Suspect]
     Active Substance: DEXAMETHASONE
     Route: 065
  4. PICLOXYDINE [Concomitant]
     Active Substance: PICLOXYDINE

REACTIONS (5)
  - Ocular hypertension [Recovering/Resolving]
  - Vision blurred [Unknown]
  - Interface fluid syndrome [Recovered/Resolved]
  - Keratoconus [Unknown]
  - Diffuse lamellar keratitis [Unknown]
